FAERS Safety Report 11679329 (Version 2)
Quarter: 2015Q4

REPORT INFORMATION
  Report Type: Spontaneous
  Country: US (occurrence: US)
  Receive Date: 20151027
  Receipt Date: 20151104
  Transmission Date: 20160304
  Serious: No
  Sender: FDA-Public Use
  Company Number: US-ELI_LILLY_AND_COMPANY-US201008003322

PATIENT
  Age: 77 Year
  Sex: Female

DRUGS (3)
  1. FORTEO [Suspect]
     Active Substance: TERIPARATIDE
     Dosage: 20 UG, DAILY (1/D)
     Route: 058
  2. FORTEO [Suspect]
     Active Substance: TERIPARATIDE
     Indication: OSTEOPOROSIS
     Dosage: 20 UG, DAILY (1/D)
     Route: 058
     Dates: end: 20100811
  3. ALEVE [Concomitant]
     Active Substance: NAPROXEN SODIUM
     Indication: ARTHRITIS

REACTIONS (19)
  - Muscular weakness [Unknown]
  - Asthenia [Unknown]
  - Bone density abnormal [Unknown]
  - Oral herpes [Unknown]
  - Blood pressure increased [Unknown]
  - Headache [Not Recovered/Not Resolved]
  - Headache [Unknown]
  - Dry skin [Unknown]
  - Fear [Unknown]
  - Depression [Unknown]
  - Pain [Unknown]
  - Pruritus [Unknown]
  - Oropharyngeal pain [Unknown]
  - Bladder disorder [Unknown]
  - Lip swelling [Not Recovered/Not Resolved]
  - Nausea [Unknown]
  - Oral disorder [Unknown]
  - Fatigue [Unknown]
  - Decreased appetite [Unknown]

NARRATIVE: CASE EVENT DATE: 20101207
